FAERS Safety Report 8620246-6 (Version None)
Quarter: 2012Q3

REPORT INFORMATION
  Report Type: 
  Country: None (occurrence: None)
  Receive Date: 20120824
  Receipt Date: 20120822
  Transmission Date: 20120928
  Serious: No
  Sender: FDA-Public Use
  Company Number: US-BAYER-2012-087838

PATIENT
  Age: 40 Year
  Sex: Female

DRUGS (1)
  1. INTERFERON BETA-1B [Suspect]
     Indication: PRODUCT USED FOR UNKNOWN INDICATION
     Dosage: .75 MG, QD
     Route: 058
     Dates: start: 20120808

REACTIONS (4)
  - ARTHRALGIA [None]
  - CHILLS [None]
  - PAIN [None]
  - INFLUENZA LIKE ILLNESS [None]
